FAERS Safety Report 7508351-9 (Version None)
Quarter: 2011Q2

REPORT INFORMATION
  Report Type: 
  Country: None (occurrence: None)
  Receive Date: 20110527
  Receipt Date: 20110518
  Transmission Date: 20111010
  Serious: Yes (Death)
  Sender: FDA-Public Use
  Company Number: KR-PFIZER INC-2011098618

PATIENT
  Age: 68 Year
  Sex: Male

DRUGS (6)
  1. CAMPTOSAR [Suspect]
     Dosage: 290 MG, UNK
     Route: 042
     Dates: start: 20110323, end: 20110331
  2. FLUOROURACIL [Suspect]
     Dosage: 1600 MG, UNK
     Route: 042
     Dates: start: 20110323, end: 20110331
  3. FLUOROURACIL [Suspect]
     Indication: METASTATIC GASTRIC CANCER
     Dosage: 1650 MG, UNK
     Route: 042
     Dates: start: 20110307, end: 20110322
  4. LEUCOVORIN CALCIUM [Suspect]
     Indication: METASTATIC GASTRIC CANCER
     Dosage: 330 MG, UNK
     Route: 042
     Dates: start: 20110307, end: 20110322
  5. LEUCOVORIN CALCIUM [Suspect]
     Dosage: 320 MG, UNK
     Route: 042
     Dates: start: 20110323, end: 20110331
  6. CAMPTOSAR [Suspect]
     Indication: METASTATIC GASTRIC CANCER
     Dosage: 300 MG, UNK
     Route: 042
     Dates: start: 20110307, end: 20110322

REACTIONS (1)
  - ASTHENIA [None]
